FAERS Safety Report 9848882 (Version 1)
Quarter: 2014Q1

REPORT INFORMATION
  Report Type: Spontaneous
  Country: NL (occurrence: NL)
  Receive Date: 20140128
  Receipt Date: 20140128
  Transmission Date: 20141002
  Serious: Yes (Hospitalization)
  Sender: FDA-Public Use
  Company Number: NL-TEVA-458747ISR

PATIENT
  Age: 64 Year
  Sex: Female

DRUGS (3)
  1. CARBOPLATIN [Suspect]
     Indication: LUNG CANCER METASTATIC
     Dosage: AUC 6
     Route: 065
  2. PACLITAXEL [Suspect]
     Indication: LUNG CANCER METASTATIC
     Dosage: 200 MG/ML DAILY; 200 MG/M2 FOR FOUR CYCLES
     Route: 065
  3. BEVACIZUMAB [Suspect]
     Indication: LUNG CANCER METASTATIC
     Route: 065

REACTIONS (6)
  - Pulmonary cavitation [Unknown]
  - Bacterial disease carrier [Unknown]
  - Anaemia [Unknown]
  - Peripheral sensory neuropathy [Unknown]
  - Hypertension [Unknown]
  - Proteinuria [Unknown]
